FAERS Safety Report 11749038 (Version 1)
Quarter: 2015Q4

REPORT INFORMATION
  Report Type: Report from Study
  Country: US (occurrence: US)
  Receive Date: 20151118
  Receipt Date: 20151118
  Transmission Date: 20160304
  Serious: Yes (Other)
  Sender: FDA-Public Use
  Company Number: US-BEH-2015055754

PATIENT
  Sex: Female

DRUGS (1)
  1. BERINERT [Suspect]
     Active Substance: HUMAN C1-ESTERASE INHIBITOR
     Indication: PRODUCT USED FOR UNKNOWN INDICATION

REACTIONS (3)
  - Atrial fibrillation [Unknown]
  - Back injury [Unknown]
  - Haemoptysis [Unknown]

NARRATIVE: CASE EVENT DATE: 20151011
